FAERS Safety Report 9156684 (Version 1)
Quarter: 2013Q1

REPORT INFORMATION
  Report Type: Spontaneous
  Country: US (occurrence: None)
  Receive Date: 20130308
  Receipt Date: 20130308
  Transmission Date: 20140127
  Serious: Yes (Other)
  Sender: FDA-Public Use
  Company Number: None

PATIENT
  Age: 75 Year
  Sex: Male

DRUGS (1)
  1. INTRON A [Suspect]
     Indication: SKIN CANCER
     Dosage: INTRON A 25MU  20 MU SQ  M/W/F
     Route: 058
     Dates: start: 20130221, end: 20130301

REACTIONS (4)
  - Atrial fibrillation [None]
  - Heart rate increased [None]
  - International normalised ratio abnormal [None]
  - Blood pressure increased [None]
